FAERS Safety Report 4454988-3 (Version None)
Quarter: 2004Q3

REPORT INFORMATION
  Report Type: 
  Country: None (occurrence: None)
  Receive Date: 20040921
  Receipt Date: 20040914
  Transmission Date: 20050211
  Serious: Yes (Life-Threatening, Other)
  Sender: FDA-Public Use
  Company Number: US-BRISTOL-MYERS SQUIBB COMPANY-12701421

PATIENT
  Age: 56 Year
  Sex: Male
  Weight: 57 kg

DRUGS (11)
  1. SUSTIVA [Suspect]
     Indication: HIV INFECTION
     Dosage: THERAPY INTERRUPTED ON 06-AUG-2004
     Route: 048
     Dates: start: 20040301
  2. KALETRA [Suspect]
     Indication: HIV INFECTION
     Dosage: THERAPY INTERRUPTED ON 06-AUG-2004
     Route: 048
     Dates: start: 20040301
  3. LOPID [Concomitant]
  4. PROTONIX [Concomitant]
  5. FERROUS SULFATE TAB [Concomitant]
  6. VIOXX [Concomitant]
  7. MARINOL [Concomitant]
     Dates: end: 20040501
  8. ATARAX [Concomitant]
  9. MEGACE [Concomitant]
  10. ALBUTEROL [Concomitant]
  11. KAYEXALATE [Concomitant]

REACTIONS (10)
  - BLOOD CREATININE INCREASED [None]
  - BLOOD POTASSIUM INCREASED [None]
  - DEHYDRATION [None]
  - GAMMA-GLUTAMYLTRANSFERASE INCREASED [None]
  - LIVER FUNCTION TEST ABNORMAL [None]
  - MENTAL STATUS CHANGES [None]
  - OEDEMA PERIPHERAL [None]
  - PALPITATIONS [None]
  - PNEUMONIA [None]
  - RENAL TUBULAR ACIDOSIS [None]
